FAERS Safety Report 9567037 (Version 1)
Quarter: 2013Q3

REPORT INFORMATION
  Report Type: Spontaneous
  Country: US (occurrence: US)
  Receive Date: 20130930
  Receipt Date: 20130930
  Transmission Date: 20140515
  Serious: No
  Sender: FDA-Public Use
  Company Number: US-AMGEN-USASP2012061043

PATIENT
  Sex: Male
  Weight: 99.77 kg

DRUGS (5)
  1. ENBREL [Suspect]
     Indication: PSORIATIC ARTHROPATHY
     Dosage: 50 MG, QWK
     Route: 058
  2. OXAPROZIN [Concomitant]
     Dosage: 600 MG, UNK
  3. LISINOPRIL [Concomitant]
     Dosage: 5 MG, UNK
  4. SIMVASTATIN [Concomitant]
     Dosage: 10 MG, UNK
  5. OMEPRAZOLE [Concomitant]
     Dosage: 20 MG, UNK

REACTIONS (2)
  - Pain [Unknown]
  - Fatigue [Unknown]
